FAERS Safety Report 8506518-4 (Version None)
Quarter: 2012Q3

REPORT INFORMATION
  Report Type: 
  Country: None (occurrence: None)
  Receive Date: 20120712
  Receipt Date: 20120329
  Transmission Date: 20120928
  Serious: No
  Sender: FDA-Public Use
  Company Number: US-GLAXOSMITHKLINE-A0968628A

PATIENT
  Age: 76 Year
  Sex: Male

DRUGS (4)
  1. JALYN [Suspect]
     Indication: PROSTATOMEGALY
     Dosage: 1CAP PER DAY
     Route: 048
     Dates: start: 20120201, end: 20120301
  2. BLOOD PRESSURE MEDICATION [Concomitant]
  3. ACETAMINOPHEN [Concomitant]
  4. ANTI-CHOLESTEROL MEDICATION [Concomitant]

REACTIONS (2)
  - DIVERTICULITIS [None]
  - GASTROINTESTINAL DISORDER [None]
